FAERS Safety Report 9894696 (Version 1)
Quarter: 2014Q1

REPORT INFORMATION
  Report Type: Spontaneous
  Country: IT (occurrence: IT)
  Receive Date: 20140213
  Receipt Date: 20140213
  Transmission Date: 20141002
  Serious: Yes (Hospitalization, Other)
  Sender: FDA-Public Use
  Company Number: IT-MYLANLABS-2014S1002467

PATIENT
  Age: 65 Year
  Sex: Female

DRUGS (6)
  1. LANSOPRAZOLE [Suspect]
     Indication: GASTROOESOPHAGEAL REFLUX PROPHYLAXIS
     Dosage: 30 MG DAILY
     Route: 048
     Dates: start: 20140111, end: 20140111
  2. ENOXAPARIN SODIUM [Interacting]
     Indication: THROMBOSIS PROPHYLAXIS
     Dosage: 4000 LU DAILY
     Route: 058
     Dates: start: 20140111, end: 20140111
  3. ALIZAPRIDE HYDROCHLORIDE [Interacting]
     Indication: PROPHYLAXIS OF NAUSEA AND VOMITING
     Dosage: 100 MG DAILY
     Route: 042
     Dates: start: 20140111, end: 20140111
  4. TRIATEC /00885601/ [Concomitant]
     Indication: HYPERTENSION
     Dosage: 5 MG
     Route: 048
  5. LEVOTHYROXINE [Concomitant]
     Indication: HYPOTHYROIDISM
     Dosage: 75 UG
     Route: 048
  6. BETAHISTINE HYDROCHLORIDE [Concomitant]
     Indication: VERTIGO
     Dosage: 16 MG
     Route: 048

REACTIONS (3)
  - Drug interaction [Recovering/Resolving]
  - Erythema [Recovering/Resolving]
  - Pruritus [Recovering/Resolving]
